FAERS Safety Report 18042332 (Version 7)
Quarter: 2020Q3

REPORT INFORMATION
  Report Type: Spontaneous
  Country: JP (occurrence: JP)
  Receive Date: 20200720
  Receipt Date: 20200924
  Transmission Date: 20201103
  Serious: Yes (Disabling, Other)
  Sender: FDA-Public Use
  Company Number: JP-GLAXOSMITHKLINE-JP2020128280

PATIENT
  Sex: Female

DRUGS (26)
  1. SIGMART [Concomitant]
     Active Substance: NICORANDIL
     Indication: PRINZMETAL ANGINA
  2. LIPITOR TABLETS [Concomitant]
     Indication: DYSLIPIDAEMIA
     Dosage: 5 MG, QD
     Route: 048
     Dates: start: 20141101
  3. MAGNESIUM OXIDE TABLET [Concomitant]
     Dosage: 1000 MG
     Route: 048
     Dates: start: 20180907
  4. ASPARA POTASSIUM POWDER [Concomitant]
     Dosage: UNK
     Route: 048
  5. ALFAROL CAPSULE [Concomitant]
     Dosage: 0.5 UG, QD
     Route: 048
  6. CONIEL [Concomitant]
     Active Substance: BENIDIPINE HYDROCHLORIDE
     Indication: CARDIAC DISORDER
     Dosage: 6 MG, 1D
     Route: 048
     Dates: start: 20141113
  7. CONIEL [Concomitant]
     Active Substance: BENIDIPINE HYDROCHLORIDE
     Indication: PRINZMETAL ANGINA
  8. SIGMART [Concomitant]
     Active Substance: NICORANDIL
     Indication: CARDIAC DISORDER
     Dosage: 5 MG, QD
     Route: 048
     Dates: start: 20160121
  9. MUCODYNE TABLETS [Concomitant]
     Dosage: 1500 MG, TID
     Route: 048
     Dates: start: 20130315
  10. PURSENNID TABLETS [Concomitant]
     Dosage: 24 MG
     Route: 048
     Dates: start: 20130930
  11. ALLOPURINOL TABLET [Concomitant]
     Active Substance: ALLOPURINOL
     Dosage: 100 MG, QD
     Route: 048
  12. SERETIDE [Suspect]
     Active Substance: FLUTICASONE PROPIONATE\SALMETEROL XINAFOATE
     Dosage: 250 UG, BID
     Route: 055
     Dates: start: 20130301, end: 20180422
  13. SYMBICORT [Suspect]
     Active Substance: BUDESONIDE\FORMOTEROL FUMARATE DIHYDRATE
     Dosage: 1 DF, BID
     Route: 055
     Dates: start: 20190402, end: 20190513
  14. ONON CAPSULES [Concomitant]
     Indication: ASTHMA
     Dosage: 225 MG, BID
     Route: 048
     Dates: start: 20130301
  15. SULTANOL [Concomitant]
     Active Substance: ALBUTEROL SULFATE
     Dosage: UNK, PRN
     Route: 055
     Dates: start: 20131003
  16. RELVAR ELLIPTA [Suspect]
     Active Substance: FLUTICASONE FUROATE\VILANTEROL TRIFENATATE
     Indication: ASTHMA
     Dosage: 200 ?G, QD
     Route: 055
     Dates: start: 20180828, end: 20190401
  17. KARY UNI OPHTHALMIC SUSPENSION [Concomitant]
     Dosage: UNK UNK, PRN
  18. RELVAR ELLIPTA [Suspect]
     Active Substance: FLUTICASONE FUROATE\VILANTEROL TRIFENATATE
     Dosage: 200 ?G, QD
     Route: 055
     Dates: start: 20190514
  19. XYZAL [Concomitant]
     Active Substance: LEVOCETIRIZINE DIHYDROCHLORIDE
     Indication: HYPERSENSITIVITY
     Dosage: 5 MG, QD
     Route: 048
     Dates: start: 20130301
  20. GASMOTIN TABLET [Concomitant]
     Dosage: 15 MG, TID
     Route: 048
     Dates: start: 20180907
  21. OPALMON TABLETS [Concomitant]
     Dosage: 15 UG, TID
     Route: 048
  22. MAXALT [Concomitant]
     Active Substance: RIZATRIPTAN BENZOATE
     Dosage: UNK UNK, PRN
     Route: 048
  23. SYMBICORT [Suspect]
     Active Substance: BUDESONIDE\FORMOTEROL FUMARATE DIHYDRATE
     Dosage: 1 DF, BID
     Route: 055
     Dates: start: 20180423, end: 20180828
  24. NEXIUM [Concomitant]
     Active Substance: ESOMEPRAZOLE MAGNESIUM
     Dosage: 20 MG, QD
     Route: 048
     Dates: start: 20180907
  25. SANCOBA OPHTHALMIC SOLUTION [Concomitant]
     Dosage: UNK UNK, PRN
  26. LUPRAC TABLETS [Concomitant]
     Dosage: 4 MG, QD
     Route: 048

REACTIONS (3)
  - Cataract subcapsular [Recovered/Resolved]
  - Vision blurred [Recovered/Resolved]
  - Cataract [Recovered/Resolved]

NARRATIVE: CASE EVENT DATE: 2018
